FAERS Safety Report 7411856-2 (Version None)
Quarter: 2011Q2

REPORT INFORMATION
  Report Type: 
  Country: None (occurrence: None)
  Receive Date: 20110413
  Receipt Date: 20110406
  Transmission Date: 20111010
  Serious: Yes (Hospitalization)
  Sender: FDA-Public Use
  Company Number: US-BAYER-201036852NA

PATIENT
  Age: 40 Year
  Sex: Female
  Weight: 61 kg

DRUGS (10)
  1. YAZ [Suspect]
     Dosage: UNK
     Dates: start: 20070304, end: 20080130
  2. LAMICTAL [Concomitant]
  3. YASMIN [Suspect]
     Indication: CONTRACEPTION
     Dosage: UNK UNK, QD
     Route: 048
     Dates: start: 20010101, end: 20070101
  4. YASMIN [Suspect]
     Dosage: UNK
     Dates: start: 20040906, end: 20050626
  5. XANAX [Concomitant]
  6. WELLBUTRIN [Concomitant]
  7. YAZ [Suspect]
     Indication: CONTRACEPTION
     Dosage: UNK UNK, QD
     Route: 048
     Dates: start: 20080101, end: 20090101
  8. ZOLOFT [Concomitant]
  9. VICODIN [Concomitant]
     Indication: PAIN
     Dates: start: 20080928
  10. YASMIN [Suspect]
     Dosage: UNK
     Dates: start: 20051206, end: 20061209

REACTIONS (11)
  - NAUSEA [None]
  - EMOTIONAL DISTRESS [None]
  - DEPRESSION [None]
  - CHOLELITHIASIS [None]
  - FEAR OF DEATH [None]
  - NERVOUSNESS [None]
  - DIARRHOEA [None]
  - INJURY [None]
  - CHOLECYSTITIS CHRONIC [None]
  - ABDOMINAL PAIN UPPER [None]
  - VOMITING [None]
